FAERS Safety Report 21740100 (Version 2)
Quarter: 2022Q4

REPORT INFORMATION
  Report Type: Report from Study
  Country: US (occurrence: US)
  Receive Date: 20221216
  Receipt Date: 20221221
  Transmission Date: 20230113
  Serious: Yes (Hospitalization, Other)
  Sender: FDA-Public Use
  Company Number: US-HORIZON THERAPEUTICS-HZN-2022-009600

PATIENT

DRUGS (5)
  1. KRYSTEXXA [Suspect]
     Active Substance: PEGLOTICASE
     Indication: Gout
     Dosage: FIRST INFUSION
     Route: 042
     Dates: start: 20221111
  2. KRYSTEXXA [Suspect]
     Active Substance: PEGLOTICASE
     Dosage: THIRD INFUSION
     Route: 042
  3. KRYSTEXXA [Suspect]
     Active Substance: PEGLOTICASE
     Dosage: INFUSION
     Route: 042
     Dates: start: 20221209
  4. BENADRYL [Concomitant]
     Active Substance: DIPHENHYDRAMINE HYDROCHLORIDE
     Indication: Premedication
  5. SOLU-MEDROL [Concomitant]
     Active Substance: METHYLPREDNISOLONE SODIUM SUCCINATE
     Indication: Premedication

REACTIONS (2)
  - Unresponsive to stimuli [Unknown]
  - Cardiac arrest [Unknown]

NARRATIVE: CASE EVENT DATE: 20220101
